FAERS Safety Report 7711375-X (Version None)
Quarter: 2011Q3

REPORT INFORMATION
  Report Type: 
  Country: None (occurrence: None)
  Receive Date: 20110817
  Receipt Date: 20110810
  Transmission Date: 20111222
  Serious: Yes (Other)
  Sender: FDA-Public Use
  Company Number: 2011028858

PATIENT
  Sex: Male
  Weight: 95.2554 kg

DRUGS (30)
  1. SYMBICORT [Concomitant]
  2. BUPROPION XL (BUPROPION) [Concomitant]
  3. HIZENTRA [Suspect]
     Indication: IMMUNODEFICIENCY COMMON VARIABLE
     Dosage: SEE IMAGE
     Route: 058
     Dates: start: 20101201
  4. HIZENTRA [Suspect]
     Indication: IMMUNODEFICIENCY COMMON VARIABLE
     Dosage: SEE IMAGE
     Route: 058
     Dates: start: 20110501
  5. HIZENTRA [Suspect]
     Indication: IMMUNODEFICIENCY COMMON VARIABLE
     Dosage: SEE IMAGE
     Route: 058
     Dates: start: 20101229
  6. HIZENTRA [Suspect]
  7. CASODEX [Concomitant]
  8. GABAPENTIN [Concomitant]
  9. LANTUS [Concomitant]
  10. LEXAPRO [Concomitant]
  11. SINGULAIR [Concomitant]
  12. AMBIEN CR [Concomitant]
  13. OMEGA-3 (OMEGA-3 FATTY ACIDS) [Concomitant]
  14. ZANTAC [Concomitant]
  15. SIMVASTATIN [Concomitant]
  16. FUROSEMIDE [Concomitant]
  17. FINASTERIDE [Concomitant]
  18. ALBUTEROL [Concomitant]
  19. HYDROCODONE BITARTRATE + ACETAMINOPHEN [Concomitant]
  20. NAPROXEN [Concomitant]
  21. FISH OIL (FISH OIL) [Concomitant]
  22. FEXOFENADINE HCL [Concomitant]
  23. PLAVIX [Concomitant]
  24. PRIMIDONE [Concomitant]
  25. CO-Q10 (UBIDECARENONE) [Concomitant]
  26. CLARITIN [Concomitant]
  27. SYNTHROID [Concomitant]
  28. DIOVAN [Concomitant]
  29. OMNARIS (CICLESONIDE) [Concomitant]
  30. MUCINEX [Concomitant]

REACTIONS (2)
  - RESPIRATORY TRACT INFECTION [None]
  - EAR INFECTION [None]
